FAERS Safety Report 14869401 (Version 3)
Quarter: 2019Q2

REPORT INFORMATION
  Report Type: Spontaneous
  Country: US (occurrence: US)
  Receive Date: 20180509
  Receipt Date: 20190523
  Transmission Date: 20190711
  Serious: No
  Sender: FDA-Public Use
  Company Number: US-PFIZER INC-2018013843

PATIENT
  Age: 34 Year
  Sex: Male
  Weight: 92 kg

DRUGS (14)
  1. GENOTROPIN [Suspect]
     Active Substance: SOMATROPIN
     Indication: BONE DISORDER
     Dosage: 5 MG, 1X/DAY
     Dates: start: 2003
  2. ALLOPURINOL. [Concomitant]
     Active Substance: ALLOPURINOL
     Dosage: 100 MG, 1X/DAY
     Route: 048
  3. HYDROCORTISONE. [Concomitant]
     Active Substance: HYDROCORTISONE
     Indication: SEIZURE
  4. ANDROGEL [Concomitant]
     Active Substance: TESTOSTERONE
     Indication: BLOOD GROWTH HORMONE
     Dosage: UNK, 1X/DAY (3 PUMPS APPLIED ON SKIN ONCE A DAY)
  5. TIMOLIDE [Concomitant]
     Active Substance: HYDROCHLOROTHIAZIDE\TIMOLOL MALEATE
     Dosage: UNK
  6. GENOTROPIN [Suspect]
     Active Substance: SOMATROPIN
     Indication: GROWTH FAILURE
     Dosage: 0.8 MG, 1X/DAY
     Route: 058
  7. GENOTROPIN [Suspect]
     Active Substance: SOMATROPIN
     Indication: BONE DEVELOPMENT ABNORMAL
     Dosage: 0.8 MG, 1X/DAY
     Route: 058
  8. FLUVOXAMINE [Concomitant]
     Active Substance: FLUVOXAMINE
     Indication: TIC
  9. HYDROCORTISONE. [Concomitant]
     Active Substance: HYDROCORTISONE
     Indication: IMMUNE SYSTEM DISORDER
     Dosage: 35 MG, DAILY (4 TABLETS BY MOUTH IN THE MORNING AND 3 TABLETS IN THE EVENING)
     Dates: start: 1992
  10. ALLOPURINOL. [Concomitant]
     Active Substance: ALLOPURINOL
     Indication: GOUT
     Dosage: 100 MG, 1X/DAY
     Route: 048
  11. VITAMIN D [Concomitant]
     Active Substance: VITAMIN D NOS
     Dosage: UNK
     Dates: start: 2008
  12. LEVOTHYROXINE. [Concomitant]
     Active Substance: LEVOTHYROXINE
     Indication: THYROID DISORDER
     Dosage: 125 UG, 1X/DAY
     Route: 048
  13. FLUVOXAMINE [Concomitant]
     Active Substance: FLUVOXAMINE
     Indication: TOURETTE^S DISORDER
     Dosage: 50 MG, 3X/DAY
     Route: 048
     Dates: start: 2007
  14. PIMOZIDE. [Concomitant]
     Active Substance: PIMOZIDE
     Indication: ATTENTION DEFICIT/HYPERACTIVITY DISORDER
     Dosage: UNK (1MG 1 TABLET BY MOUTH 1 TO 2 TIMES A DAY)
     Route: 048
     Dates: start: 201807

REACTIONS (4)
  - Device battery issue [Unknown]
  - Product dose omission [Unknown]
  - Weight increased [Unknown]
  - Device ineffective [Unknown]

NARRATIVE: CASE EVENT DATE: 201712
